FAERS Safety Report 9999340 (Version 5)
Quarter: 2014Q2

REPORT INFORMATION
  Report Type: Spontaneous
  Country: US (occurrence: US)
  Receive Date: 20140312
  Receipt Date: 20140617
  Transmission Date: 20141212
  Serious: No
  Sender: FDA-Public Use
  Company Number: 2014SP001281

PATIENT
  Sex: Female

DRUGS (2)
  1. OMNARIS NASAL SPRAY [Suspect]
     Route: 045
  2. OMNARIS NASAL SPRAY [Suspect]
     Route: 045

REACTIONS (1)
  - Hypoglycaemia [Not Recovered/Not Resolved]
